FAERS Safety Report 13240876 (Version 5)
Quarter: 2017Q1

REPORT INFORMATION
  Report Type: Spontaneous
  Country: US (occurrence: US)
  Receive Date: 20170216
  Receipt Date: 20170320
  Transmission Date: 20170428
  Serious: Yes (Hospitalization, Other)
  Sender: FDA-Public Use
  Company Number: US-ALEXION PHARMACEUTICALS INC.-A201701323

PATIENT
  Age: 26 Year
  Sex: Male

DRUGS (4)
  1. SOLIRIS [Suspect]
     Active Substance: ECULIZUMAB
     Dosage: 1200 MG, Q2W
     Route: 042
  2. LAXATIVE [Concomitant]
     Active Substance: UNSPECIFIED INGREDIENT
     Indication: PRODUCT USED FOR UNKNOWN INDICATION
     Dosage: UNK
     Route: 048
     Dates: start: 20170306
  3. REGLAN [Concomitant]
     Active Substance: METOCLOPRAMIDE HYDROCHLORIDE
     Indication: PRODUCT USED FOR UNKNOWN INDICATION
     Route: 065
  4. SOLIRIS [Suspect]
     Active Substance: ECULIZUMAB
     Indication: HAEMOLYTIC URAEMIC SYNDROME
     Dosage: UNK
     Route: 042

REACTIONS (17)
  - Insomnia [Unknown]
  - Thrombosis [Unknown]
  - Faeces hard [Unknown]
  - Infection [Unknown]
  - Clostridium difficile colitis [Recovered/Resolved]
  - Clostridium difficile infection [Recovered/Resolved]
  - Fatigue [Unknown]
  - Thrombocytopenia [Unknown]
  - Bowel movement irregularity [Unknown]
  - Fluid overload [Unknown]
  - Abdominal pain [Not Recovered/Not Resolved]
  - Pleural effusion [Unknown]
  - Haemoptysis [Unknown]
  - Depression [Unknown]
  - Nausea [Unknown]
  - Dyspnoea [Unknown]
  - Diarrhoea [Recovered/Resolved]

NARRATIVE: CASE EVENT DATE: 20170212
